FAERS Safety Report 4859664-0 (Version None)
Quarter: 2005Q4

REPORT INFORMATION
  Report Type: 
  Country: None (occurrence: None)
  Receive Date: 20051215
  Receipt Date: 20051215
  Transmission Date: 20060501
  Serious: Yes (Death)
  Sender: FDA-Public Use
  Company Number: None

PATIENT
  Age: 31 Year
  Sex: Male

DRUGS (1)
  1. BIOGLUE CRYOLIFE [Suspect]
     Dates: start: 20050310, end: 20050328

REACTIONS (4)
  - ASPERGILLOSIS [None]
  - FUNGAL ENDOCARDITIS [None]
  - POST PROCEDURAL COMPLICATION [None]
  - POSTOPERATIVE WOUND INFECTION [None]
